FAERS Safety Report 19384160 (Version 8)
Quarter: 2021Q3

REPORT INFORMATION
  Report Type: Report from Study
  Country: ES (occurrence: ES)
  Receive Date: 20210608
  Receipt Date: 20210923
  Transmission Date: 20211014
  Serious: Yes (Hospitalization)
  Sender: FDA-Public Use
  Company Number: ES-ROCHE-2820213

PATIENT
  Age: 68 Year
  Sex: Male
  Weight: 61.3 kg

DRUGS (27)
  1. ALLOPURINOL. [Concomitant]
     Active Substance: ALLOPURINOL
     Indication: PROPHYLAXIS
     Dates: start: 20210330
  2. METFORMIN [Concomitant]
     Active Substance: METFORMIN HYDROCHLORIDE
     Indication: DIABETES MELLITUS
  3. OBINUTUZUMAB. [Suspect]
     Active Substance: OBINUTUZUMAB
     Indication: B-CELL LYMPHOMA
     Dosage: MOST RECENT DOSE RECEIVED ON 24/MAR/2021, 1000 MG, FROM 04:51 PM TO 09:57 PM (TOTAL VOLUME 310 ML)
     Route: 042
     Dates: start: 20210324
  4. VANCOMYCIN [Concomitant]
     Active Substance: VANCOMYCIN
     Indication: CLOSTRIDIUM DIFFICILE COLITIS
     Dates: start: 20210401, end: 20210410
  5. PARACETAMOL [Concomitant]
     Active Substance: ACETAMINOPHEN
     Indication: PAIN
     Route: 042
     Dates: start: 20210414, end: 20210414
  6. DEXCHLORPHENIRAMINE [Concomitant]
     Active Substance: DEXCHLORPHENIRAMINE
     Route: 042
     Dates: start: 20210330, end: 20210330
  7. DEXCHLORPHENIRAMINE [Concomitant]
     Active Substance: DEXCHLORPHENIRAMINE
     Route: 042
     Dates: start: 20210505, end: 20210505
  8. OMEPRAZOLE. [Concomitant]
     Active Substance: OMEPRAZOLE
     Indication: PROPHYLAXIS
  9. TAMSULOSIN [Concomitant]
     Active Substance: TAMSULOSIN
  10. BUSCAPINE [Concomitant]
     Active Substance: BUTYLSCOPOLAMINE
     Indication: CYTOKINE RELEASE SYNDROME
     Dates: start: 20210401, end: 20210401
  11. PARACETAMOL [Concomitant]
     Active Substance: ACETAMINOPHEN
     Indication: CYTOKINE RELEASE SYNDROME
     Dosage: HE ADMINISTERED NEXT DOSE ON: 31/MAR/2021, 05/MAY/2021, 07/APR/2021
     Route: 048
     Dates: start: 20210330, end: 20210330
  12. PARACETAMOL [Concomitant]
     Active Substance: ACETAMINOPHEN
     Route: 048
     Dates: start: 20210505, end: 20210505
  13. DEXAMETHASONE. [Concomitant]
     Active Substance: DEXAMETHASONE
     Route: 042
     Dates: start: 20210505, end: 20210505
  14. FENTANYL. [Concomitant]
     Active Substance: FENTANYL
     Indication: PAIN
     Route: 062
  15. PRIMPERAN [Concomitant]
     Active Substance: METOCLOPRAMIDE HYDROCHLORIDE
     Indication: NAUSEA
     Dates: start: 20210324
  16. ENTECAVIR. [Concomitant]
     Active Substance: ENTECAVIR
     Indication: PROPHYLAXIS
  17. POLATUZUMAB VEDOTIN. [Suspect]
     Active Substance: POLATUZUMAB VEDOTIN
     Indication: B-CELL LYMPHOMA
     Dosage: MOST RECENT DOSE RECEIVED ON 05/MAY/2021, 113 MG, FROM 10:14 AM TO 10:46 AM (TOTAL VOLUME 116 ML)?MO
     Route: 042
     Dates: start: 20210325
  18. CEFEPIME [Concomitant]
     Active Substance: CEFEPIME HYDROCHLORIDE
     Indication: PYREXIA
     Dates: start: 20210403, end: 20210406
  19. GLOFITAMAB. [Suspect]
     Active Substance: GLOFITAMAB
     Indication: B-CELL LYMPHOMA
     Dosage: MOST RECENT DOSE RECEIVED ON 14/APR/2021, 30 MG, FROM 02:42 PM TO 06:56 PM?MOST RECENT DOSE RECEIVED
     Route: 042
     Dates: start: 20210330
  20. PARACETAMOL [Concomitant]
     Active Substance: ACETAMINOPHEN
     Dosage: HE ADMINISTERED NEXT DOSE ON: 31/MAR/2021, 05/MAY/2021, 07/APR/2021
     Route: 048
     Dates: start: 20210331, end: 20210331
  21. DEXCHLORPHENIRAMINE [Concomitant]
     Active Substance: DEXCHLORPHENIRAMINE
     Route: 042
     Dates: start: 20210407, end: 20210407
  22. DEXAMETHASONE. [Concomitant]
     Active Substance: DEXAMETHASONE
     Route: 042
     Dates: start: 20210407, end: 20210407
  23. ONDANSETRON [Concomitant]
     Active Substance: ONDANSETRON
     Indication: NAUSEA
  24. DEXCHLORPHENIRAMINE [Concomitant]
     Active Substance: DEXCHLORPHENIRAMINE
     Route: 042
     Dates: start: 20210414, end: 20210414
  25. DEXAMETHASONE. [Concomitant]
     Active Substance: DEXAMETHASONE
     Route: 042
     Dates: start: 20210330, end: 20210330
  26. DEXAMETHASONE. [Concomitant]
     Active Substance: DEXAMETHASONE
     Route: 042
     Dates: start: 20210414, end: 20210414
  27. LEVOFLOXACIN. [Concomitant]
     Active Substance: LEVOFLOXACIN
     Indication: PYREXIA
     Dates: start: 20210406, end: 20210410

REACTIONS (2)
  - Haematemesis [Recovered/Resolved with Sequelae]
  - Cytomegalovirus oesophagitis [Not Recovered/Not Resolved]

NARRATIVE: CASE EVENT DATE: 20210427
